FAERS Safety Report 8458339-9 (Version None)
Quarter: 2012Q2

REPORT INFORMATION
  Report Type: 
  Country: None (occurrence: None)
  Receive Date: 20120615
  Receipt Date: 20120611
  Transmission Date: 20120825
  Serious: Yes (Other)
  Sender: FDA-Public Use
  Company Number: AUR-APL-2012-02530

PATIENT
  Age: 81 Year
  Sex: Male

DRUGS (5)
  1. WARFARIN SODIUM [Concomitant]
  2. ALLOPURINOL [Concomitant]
  3. LISINOPRIL [Suspect]
     Indication: PRODUCT USED FOR UNKNOWN INDICATION
  4. CELECOXIB [Concomitant]
  5. INSULIN [Concomitant]

REACTIONS (2)
  - HYPOTENSIVE TRANSFUSION REACTION [None]
  - DIZZINESS [None]
